FAERS Safety Report 10952098 (Version 1)
Quarter: 2015Q1

REPORT INFORMATION
  Report Type: Spontaneous
  Country: US (occurrence: None)
  Receive Date: 20150324
  Receipt Date: 20150324
  Transmission Date: 20150721
  Serious: Yes (Life-Threatening, Hospitalization, Disabling, Other)
  Sender: FDA-Public Use
  Company Number: None

PATIENT
  Age: 82 Year
  Sex: Male
  Weight: 90.72 kg

DRUGS (3)
  1. KIRKLAND VITAMIN D3 [Concomitant]
  2. LEVOFLOXACIN 750 MG [Suspect]
     Active Substance: LEVOFLOXACIN
     Indication: PNEUMONIA
     Dosage: 1 PILL A DAY 5 DAYS
     Dates: start: 20140106, end: 20140106
  3. NATURE MADE IRON [Concomitant]

REACTIONS (5)
  - Thrombosis [None]
  - Tendonitis [None]
  - Malaise [None]
  - Tendon rupture [None]
  - Arthralgia [None]

NARRATIVE: CASE EVENT DATE: 20140106
